FAERS Safety Report 9237986 (Version 1)
Quarter: 2013Q1

REPORT INFORMATION
  Report Type: Spontaneous
  Country: US (occurrence: None)
  Receive Date: 20121107
  Receipt Date: 20121107
  Transmission Date: 20140127
  Serious: No
  Sender: FDA-Public Use
  Company Number: 2012HGS-003757

PATIENT
  Age: 60 Year
  Sex: Female

DRUGS (11)
  1. BENLYSTA [Suspect]
     Indication: SYSTEMIC LUPUS ERYTHEMATOSUS
     Route: 041
     Dates: start: 20120601
  2. XANAX (ALPRAZOLAM) [Concomitant]
  3. ACETYLSALICYLIC ACID [Concomitant]
  4. OSCAL (CALCITRIOL) [Concomitant]
  5. NEUROTIN (ACETYLCARNITINE HYDROCHLORIDE) [Concomitant]
  6. LOVASTATIN [Concomitant]
  7. MULTIVITAMIN (MULTIVITAMIN) [Concomitant]
  8. CELLCEPT (MYCOPHENOLATE MOFETIL) TABLET [Concomitant]
  9. PERCOCET (TYLOX/00446701/PARACETAMOL, OXYCODONE HYDROCHLORIDE, OXYCODONE TEREPHTHALATE) [Concomitant]
  10. PREDNISONE [Concomitant]
  11. SAVELLA (MILNACIPRAN HYDROCHLORIDE) [Concomitant]

REACTIONS (3)
  - Pruritus generalised [None]
  - Urticaria [None]
  - Rash [None]
